FAERS Safety Report 6411129-0 (Version None)
Quarter: 2009Q4

REPORT INFORMATION
  Report Type: 
  Country: None (occurrence: None)
  Receive Date: 20091022
  Receipt Date: 20091013
  Transmission Date: 20100525
  Serious: Yes (Other)
  Sender: FDA-Public Use
  Company Number: PT-PFIZER INC-2009282271

PATIENT

DRUGS (5)
  1. ECALTA [Suspect]
     Indication: SYSTEMIC CANDIDA
     Dosage: UNK
  2. MYCOPHENOLATE MOFETIL [Suspect]
     Indication: IMMUNOSUPPRESSION
  3. CEFTAZIDIME [Suspect]
  4. AMIKACIN [Concomitant]
  5. TACROLIMUS [Concomitant]
     Indication: IMMUNOSUPPRESSION

REACTIONS (3)
  - DRUG INTERACTION [None]
  - IMMUNOSUPPRESSANT DRUG LEVEL DECREASED [None]
  - LEUKOPENIA [None]
